FAERS Safety Report 17184894 (Version 1)
Quarter: 2019Q4

REPORT INFORMATION
  Report Type: Spontaneous
  Country: US (occurrence: US)
  Receive Date: 20191219
  Receipt Date: 20191219
  Transmission Date: 20200122
  Serious: No
  Sender: FDA-Public Use
  Company Number: None

PATIENT
  Age: 66 Year
  Sex: Female
  Weight: 45 kg

DRUGS (9)
  1. KLONOPIN 0.5MG [Concomitant]
     Dates: start: 20190601
  2. BENADRYL [Concomitant]
     Active Substance: DIPHENHYDRAMINE HYDROCHLORIDE
     Dates: start: 20190601
  3. TYMLOS [Suspect]
     Active Substance: ABALOPARATIDE
     Indication: OSTEOPOROSIS
     Route: 058
     Dates: start: 20190624, end: 20191219
  4. NO DRUG NAME [Concomitant]
     Dates: start: 20190601
  5. LEXAPRO [Concomitant]
     Active Substance: ESCITALOPRAM OXALATE
     Dates: start: 20190601
  6. AMBIEN [Concomitant]
     Active Substance: ZOLPIDEM TARTRATE
     Dates: start: 20190601
  7. TETRACYCLINE 250MG [Concomitant]
     Dates: start: 20190601
  8. DICLOFENAC 100MG [Concomitant]
  9. ZYRTEC 10MG OTC [Concomitant]
     Dates: start: 20190601

REACTIONS (3)
  - Fatigue [None]
  - Headache [None]
  - Dizziness [None]

NARRATIVE: CASE EVENT DATE: 20190919
